FAERS Safety Report 7428675 (Version 4)
Quarter: 2013Q1

REPORT INFORMATION
  Report Type: Spontaneous
  Country: US (occurrence: US)
  Receive Date: 20100623
  Receipt Date: 20130311
  Transmission Date: 20140127
  Serious: Yes (Hospitalization)
  Sender: FDA-Public Use
  Company Number: US-BAYER-201025518NA

PATIENT
  Age: 19 Year
  Sex: Female
  Weight: 99.77 kg

DRUGS (4)
  1. YAZ [Suspect]
     Indication: CONTRACEPTION
     Route: 048
     Dates: start: 200407
  2. YASMIN [Suspect]
     Indication: CONTRACEPTION
     Dosage: UNK UNK, QD
     Route: 048
     Dates: start: 20060426, end: 200606
  3. ALEVE [Concomitant]
     Indication: HEADACHE
     Dosage: UNK UNK, PRN
  4. BENADRYL [Concomitant]

REACTIONS (5)
  - Pulmonary embolism [Recovered/Resolved]
  - Pleuritic pain [Recovered/Resolved]
  - Flank pain [Recovered/Resolved]
  - Nausea [Recovered/Resolved]
  - Chest pain [Recovered/Resolved]
